FAERS Safety Report 6153936-8 (Version None)
Quarter: 2009Q2

REPORT INFORMATION
  Report Type: 
  Country: None (occurrence: None)
  Receive Date: 20090414
  Receipt Date: 20090408
  Transmission Date: 20091009
  Serious: No
  Sender: FDA-Public Use
  Company Number: US-BAYER-200912202NA

PATIENT
  Age: 28 Year
  Sex: Female

DRUGS (5)
  1. MIRENA [Suspect]
     Indication: CONTRACEPTION
     Dosage: CONTINUOUS
     Route: 015
     Dates: start: 20080925
  2. TOPAMAX [Concomitant]
  3. LORA TAB [Concomitant]
  4. VITAMIN TAB [Concomitant]
  5. MORPHINE [Concomitant]
     Indication: BACK PAIN

REACTIONS (1)
  - PREGNANCY WITH CONTRACEPTIVE DEVICE [None]
